FAERS Safety Report 12736207 (Version 2)
Quarter: 2017Q2

REPORT INFORMATION
  Report Type: Spontaneous
  Country: US (occurrence: US)
  Receive Date: 20160913
  Receipt Date: 20170417
  Transmission Date: 20170830
  Serious: No
  Sender: FDA-Public Use
  Company Number: US-TEVA-681400USA

PATIENT
  Age: 46 Year
  Sex: Female

DRUGS (21)
  1. DEPO-PROVERA [Concomitant]
     Active Substance: MEDROXYPROGESTERONE ACETATE
  2. VITAMIN C [Concomitant]
     Active Substance: ASCORBIC ACID
  3. FLOMAX [Concomitant]
     Active Substance: TAMSULOSIN HYDROCHLORIDE
  4. FLONASE [Concomitant]
     Active Substance: FLUTICASONE PROPIONATE
  5. PEG [Concomitant]
     Active Substance: POLYETHYLENE GLYCOLS
  6. NEURONTIN [Concomitant]
     Active Substance: GABAPENTIN
  7. IRON [Concomitant]
     Active Substance: IRON
  8. CALCIUM [Concomitant]
     Active Substance: CALCIUM
  9. ULTRAM [Concomitant]
     Active Substance: TRAMADOL HYDROCHLORIDE
  10. LIPITOR [Concomitant]
     Active Substance: ATORVASTATIN CALCIUM
  11. PRILOSEC [Concomitant]
     Active Substance: OMEPRAZOLE MAGNESIUM
  12. ROSUVASTATIN. [Concomitant]
     Active Substance: ROSUVASTATIN
  13. PREDNISONE. [Concomitant]
     Active Substance: PREDNISONE
  14. ZYRTEC [Concomitant]
     Active Substance: CETIRIZINE HYDROCHLORIDE
  15. GABAPENTIN. [Concomitant]
     Active Substance: GABAPENTIN
  16. MOBIC [Concomitant]
     Active Substance: MELOXICAM
  17. ELAVIL [Concomitant]
     Active Substance: AMITRIPTYLINE HYDROCHLORIDE
  18. COPAXONE [Suspect]
     Active Substance: GLATIRAMER ACETATE
     Indication: MULTIPLE SCLEROSIS
     Dosage: 20 MILLIGRAM/MILLILITERS DAILY;
     Route: 058
     Dates: start: 20160311
  19. BACLOFEN. [Concomitant]
     Active Substance: BACLOFEN
  20. VITAMIN D [Concomitant]
     Active Substance: CHOLECALCIFEROL
  21. MAGNESIUM [Concomitant]
     Active Substance: MAGNESIUM

REACTIONS (2)
  - Fall [Unknown]
  - Hypoaesthesia [Unknown]

NARRATIVE: CASE EVENT DATE: 20160706
